FAERS Safety Report 9674467 (Version 3)
Quarter: 2013Q4

REPORT INFORMATION
  Report Type: Report from Study
  Country: BR (occurrence: BR)
  Receive Date: 20131107
  Receipt Date: 20131216
  Transmission Date: 20140711
  Serious: Yes (Hospitalization)
  Sender: FDA-Public Use
  Company Number: BR-ROCHE-702453

PATIENT
  Sex: Female
  Weight: 95 kg

DRUGS (9)
  1. ACTEMRA [Suspect]
     Indication: RHEUMATOID ARTHRITIS
     Dosage: FORM: INFUSION
     Route: 042
  2. PRELONE [Concomitant]
     Route: 065
  3. LOSARTAN [Concomitant]
     Route: 065
  4. OMEPRAZOLE [Concomitant]
  5. AD-TIL [Concomitant]
  6. OSTEONUTRI [Concomitant]
     Indication: OSTEOPOROSIS
     Route: 065
  7. HYDROCHLOROTHIAZIDE [Concomitant]
     Indication: OSTEOPOROSIS
     Route: 065
  8. ACETYLCYSTEINE [Concomitant]
  9. SIBUTRAMINE HYDROCHLORIDE [Concomitant]
     Route: 065

REACTIONS (9)
  - Gastrointestinal infection [Recovered/Resolved]
  - Limb deformity [Unknown]
  - Rheumatoid arthritis [Not Recovered/Not Resolved]
  - Respiratory tract infection [Recovering/Resolving]
  - Arthralgia [Recovering/Resolving]
  - Urinary tract infection [Recovered/Resolved]
  - Decreased immune responsiveness [Recovered/Resolved]
  - Dermatitis [Unknown]
  - Drug dose omission [Unknown]
